FAERS Safety Report 16691806 (Version 2)
Quarter: 2019Q3

REPORT INFORMATION
  Report Type: Spontaneous
  Country: US (occurrence: US)
  Receive Date: 20190812
  Receipt Date: 20190828
  Transmission Date: 20191004
  Serious: No
  Sender: FDA-Public Use
  Company Number: US-CELGENEUS-USA-20190801389

PATIENT
  Age: 82 Year
  Sex: Female

DRUGS (2)
  1. OTEZLA [Suspect]
     Active Substance: APREMILAST
     Indication: THYROIDITIS
     Dosage: 60 MILLIGRAM
     Route: 048
     Dates: start: 20190722
  2. OTEZLA [Suspect]
     Active Substance: APREMILAST
     Indication: PSORIASIS
     Dosage: 60 MILLIGRAM
     Route: 048
     Dates: start: 20190713

REACTIONS (5)
  - Product dose omission [Unknown]
  - Haematochezia [Unknown]
  - Oropharyngeal discomfort [Unknown]
  - Unevaluable event [Unknown]
  - Abdominal discomfort [Unknown]

NARRATIVE: CASE EVENT DATE: 201907
